FAERS Safety Report 20654331 (Version 3)
Quarter: 2022Q3

REPORT INFORMATION
  Report Type: Spontaneous
  Country: US (occurrence: US)
  Receive Date: 20220330
  Receipt Date: 20220929
  Transmission Date: 20221026
  Serious: Yes (Other)
  Sender: FDA-Public Use
  Company Number: US-PFIZER INC-202200483402

PATIENT
  Age: 58 Year
  Sex: Female

DRUGS (2)
  1. XELJANZ XR [Suspect]
     Active Substance: TOFACITINIB CITRATE
     Dosage: UNK
     Dates: start: 20200330
  2. XELJANZ XR [Suspect]
     Active Substance: TOFACITINIB CITRATE
     Dosage: UNK
     Dates: start: 20200425

REACTIONS (7)
  - Spinal operation [Unknown]
  - Rotator cuff repair [Unknown]
  - Rheumatoid arthritis [Unknown]
  - Arthralgia [Unknown]
  - Back pain [Unknown]
  - Fall [Unknown]
  - Back disorder [Unknown]

NARRATIVE: CASE EVENT DATE: 20220427
